FAERS Safety Report 9697552 (Version 1)
Quarter: 2013Q4

REPORT INFORMATION
  Report Type: Spontaneous
  Country: US (occurrence: None)
  Receive Date: 20131119
  Receipt Date: 20131119
  Transmission Date: 20140711
  Serious: Yes (Hospitalization, Other)
  Sender: FDA-Public Use
  Company Number: None

PATIENT
  Age: 56 None
  Sex: Female
  Weight: 88.45 kg

DRUGS (1)
  1. DAPSONE [Suspect]
     Indication: FUNGAL INFECTION
     Dosage: 4 TABLETS DAILY BY MOUTH
     Route: 048
     Dates: start: 20130925, end: 20131004

REACTIONS (5)
  - Nausea [None]
  - Drug hypersensitivity [None]
  - Blister [None]
  - Stevens-Johnson syndrome [None]
  - Toxic epidermal necrolysis [None]
